FAERS Safety Report 24554557 (Version 2)
Quarter: 2025Q1

REPORT INFORMATION
  Report Type: Spontaneous
  Country: CA (occurrence: CA)
  Receive Date: 20241028
  Receipt Date: 20250303
  Transmission Date: 20250408
  Serious: Yes (Other)
  Sender: MICRO LABS
  Company Number: CA-862174955-ML2024-05631

PATIENT
  Age: 71 Year
  Sex: Female

DRUGS (1)
  1. RANOLAZINE [Suspect]
     Active Substance: RANOLAZINE
     Indication: Angina pectoris
     Route: 048
     Dates: start: 20240320

REACTIONS (4)
  - Pneumonia [Unknown]
  - Lower respiratory tract infection [Unknown]
  - Pulmonary congestion [Unknown]
  - Back pain [Unknown]

NARRATIVE: CASE EVENT DATE: 20241001
